FAERS Safety Report 16337369 (Version 2)
Quarter: 2020Q2

REPORT INFORMATION
  Report Type: Spontaneous
  Country: US (occurrence: US)
  Receive Date: 20190521
  Receipt Date: 20200422
  Transmission Date: 20200713
  Serious: Yes (Other)
  Sender: FDA-Public Use
  Company Number: US-009507513-1905USA008841

PATIENT
  Sex: Female
  Weight: 63.95 kg

DRUGS (2)
  1. JANUVIA [Suspect]
     Active Substance: SITAGLIPTIN PHOSPHATE
     Dosage: UNK
     Route: 048
     Dates: start: 20150707, end: 201508
  2. JANUMET [Suspect]
     Active Substance: METFORMIN HYDROCHLORIDE\SITAGLIPTIN PHOSPHATE
     Dosage: UNK
     Route: 048
     Dates: start: 201602, end: 201609

REACTIONS (29)
  - Adrenal disorder [Unknown]
  - Hypotension [Unknown]
  - Hepatic steatosis [Unknown]
  - Pneumobilia [Unknown]
  - Pulmonary mass [Unknown]
  - Aortic arteriosclerosis [Unknown]
  - Small intestinal anastomosis [Unknown]
  - Metastases to liver [Unknown]
  - Hepatic lesion [Unknown]
  - Hip arthroplasty [Unknown]
  - Pancreatic duct dilatation [Unknown]
  - Sciatica [Unknown]
  - Leiomyoma [Unknown]
  - Adrenal mass [Unknown]
  - Dehydration [Recovering/Resolving]
  - Pancreatic failure [Unknown]
  - Adrenal adenoma [Unknown]
  - Complication associated with device [Unknown]
  - Anaemia [Unknown]
  - Pancreatic carcinoma metastatic [Unknown]
  - Metastases to lymph nodes [Unknown]
  - Cholelithiasis [Unknown]
  - Arteriosclerosis [Unknown]
  - Presyncope [Unknown]
  - Hepatic cyst [Unknown]
  - Pancreatic atrophy [Unknown]
  - Diverticulum [Unknown]
  - Intra-abdominal fluid collection [Unknown]
  - Spinal osteoarthritis [Unknown]

NARRATIVE: CASE EVENT DATE: 2017
